FAERS Safety Report 6191596-0 (Version None)
Quarter: 2009Q2

REPORT INFORMATION
  Report Type: 
  Country: None (occurrence: None)
  Receive Date: 20090515
  Receipt Date: 20090507
  Transmission Date: 20091009
  Serious: Yes (Other)
  Sender: FDA-Public Use
  Company Number: PHHY2009NL17622

PATIENT
  Sex: Female
  Weight: 110 kg

DRUGS (3)
  1. MYFORTIC [Suspect]
     Indication: PSORIASIS
     Dosage: UNK
     Route: 048
     Dates: start: 20080101
  2. MYFORTIC [Suspect]
     Dosage: 1 TAB/DAY
     Route: 048
  3. MYFORTIC [Suspect]
     Dosage: 4 TAB/DAY
     Route: 048
     Dates: start: 20090401

REACTIONS (9)
  - ABNORMAL FAECES [None]
  - CONDITION AGGRAVATED [None]
  - FATIGUE [None]
  - HEADACHE [None]
  - INSOMNIA [None]
  - MUSCULOSKELETAL PAIN [None]
  - PSORIASIS [None]
  - RASH PRURITIC [None]
  - VISUAL ACUITY REDUCED [None]
